FAERS Safety Report 24747030 (Version 1)
Quarter: 2024Q4

REPORT INFORMATION
  Report Type: Report from Study
  Country: ES (occurrence: ES)
  Receive Date: 20241218
  Receipt Date: 20241218
  Transmission Date: 20250115
  Serious: Yes (Other)
  Sender: TEVA
  Company Number: ES-TEVA-VS-3275294

PATIENT
  Age: 64 Year
  Sex: Female

DRUGS (6)
  1. TERIPARATIDE [Suspect]
     Active Substance: TERIPARATIDE
     Indication: Osteoporosis
     Route: 065
     Dates: start: 20241204
  2. Deprax [Concomitant]
     Indication: Depression
     Dosage: DOSAGE: 0-0-1 1/2, START DATE: LONG TIME AGO, END DATE: CONTINUED
     Route: 065
  3. ATORVASTATIN [Concomitant]
     Active Substance: ATORVASTATIN
     Indication: Hypercholesterolaemia
     Dosage: START DATE: LONG TIME AGO, END DATE: CONTINUED
     Route: 065
  4. SEROTONIN [Concomitant]
     Active Substance: SEROTONIN
     Indication: Depression
     Dosage: THE PATIENT DOESN^T REMEMBER THE NAME, START DATE: LONG TIME AGO, END DATE: CONTINUED
     Route: 065
  5. LEVOTHYROXINE SODIUM [Concomitant]
     Active Substance: LEVOTHYROXINE SODIUM
     Indication: Hypothyroidism
     Dosage: 112, START DATE: LONG TIME AGO, END DATE: CONTINUED
     Route: 065
  6. QUETIAPINE FUMARATE [Concomitant]
     Active Substance: QUETIAPINE FUMARATE
     Indication: Depression
     Dosage: 200, START DATE: LONG TIME AGO, END DATE: CONTINUED
     Route: 065

REACTIONS (6)
  - Mass [Not Recovered/Not Resolved]
  - Headache [Not Recovered/Not Resolved]
  - Pain [Not Recovered/Not Resolved]
  - Pruritus [Not Recovered/Not Resolved]
  - Erythema [Not Recovered/Not Resolved]
  - Skin warm [Not Recovered/Not Resolved]

NARRATIVE: CASE EVENT DATE: 20241204
